FAERS Safety Report 4289947-7 (Version None)
Quarter: 2004Q1

REPORT INFORMATION
  Report Type: 
  Country: None (occurrence: None)
  Receive Date: 20040209
  Receipt Date: 20040129
  Transmission Date: 20041129
  Serious: Yes (Hospitalization)
  Sender: FDA-Public Use
  Company Number: PHEH2004US01369

PATIENT
  Age: 82 Year
  Sex: Female

DRUGS (5)
  1. EXELON [Suspect]
     Dosage: 6 MG, UNK
     Route: 048
  2. FOSAMAX [Concomitant]
  3. ACCUPRIL [Concomitant]
  4. ZOLOFT [Concomitant]
  5. METHOTREXATE [Concomitant]

REACTIONS (2)
  - GASTROINTESTINAL DISORDER [None]
  - MEDICATION ERROR [None]
